FAERS Safety Report 18876290 (Version 1)
Quarter: 2021Q1

REPORT INFORMATION
  Report Type: Spontaneous
  Country: US (occurrence: US)
  Receive Date: 20210210
  Receipt Date: 20210210
  Transmission Date: 20210420
  Serious: No
  Sender: FDA-Public Use
  Company Number: US-ETHYPHARM-202001920

PATIENT
  Age: 68 Year
  Sex: Female

DRUGS (2)
  1. BUPRENORPHINE. [Suspect]
     Active Substance: BUPRENORPHINE
     Indication: DRUG DEPENDENCE
     Dosage: NDC#50383?0930?93; EXPIRY DATE OCT?2021
     Route: 065
     Dates: start: 202011
  2. XANAX [Concomitant]
     Active Substance: ALPRAZOLAM
     Indication: ANXIETY
     Dosage: PER REQUIRED NEED
     Route: 065

REACTIONS (4)
  - Drug withdrawal syndrome [Recovered/Resolved]
  - Malaise [Recovered/Resolved]
  - Abdominal discomfort [Recovered/Resolved]
  - Drug ineffective [Recovered/Resolved]
